FAERS Safety Report 8542012-2 (Version None)
Quarter: 2012Q3

REPORT INFORMATION
  Report Type: 
  Country: None (occurrence: None)
  Receive Date: 20120726
  Receipt Date: 20110930
  Transmission Date: 20120928
  Serious: No
  Sender: FDA-Public Use
  Company Number: US-ASTRAZENECA-2011SE59116

PATIENT
  Sex: Female
  Weight: 95.3 kg

DRUGS (8)
  1. METHYLPHENIDATE HCL [Concomitant]
  2. PROMETHAZINE HCL [Concomitant]
  3. TRAMADOL HCL [Concomitant]
  4. ATIVAN [Concomitant]
  5. SEROQUEL [Suspect]
     Route: 048
  6. ANUSOL HC [Suspect]
     Indication: PAIN
  7. PERCOCET [Suspect]
     Dosage: 5-325 MG
     Route: 048
  8. VALTREX [Concomitant]

REACTIONS (5)
  - ATTENTION DEFICIT/HYPERACTIVITY DISORDER [None]
  - BIPOLAR DISORDER [None]
  - ANORECTAL DISORDER [None]
  - PROCTALGIA [None]
  - HAEMORRHOIDS [None]
